FAERS Safety Report 5265828-7 (Version None)
Quarter: 2007Q1

REPORT INFORMATION
  Report Type: 
  Country: None (occurrence: None)
  Receive Date: 20070313
  Receipt Date: 20070313
  Transmission Date: 20070707
  Serious: Yes (Death)
  Sender: FDA-Public Use
  Company Number: None

PATIENT
  Age: 39 Year
  Sex: Male

DRUGS (1)
  1. BLEOMYCIN [Suspect]
     Dosage: CBOP-BEP CLINICAL TRIAL

REACTIONS (2)
  - DRUG TOXICITY [None]
  - LUNG INJURY [None]
